FAERS Safety Report 8632563 (Version 3)
Quarter: 2013Q1

REPORT INFORMATION
  Report Type: Spontaneous
  Country: US (occurrence: US)
  Receive Date: 20120625
  Receipt Date: 20130114
  Transmission Date: 20140127
  Serious: Yes (Hospitalization)
  Sender: FDA-Public Use
  Company Number: US-BAYER-2012-061764

PATIENT
  Age: 34 Year
  Sex: Female
  Weight: 88.44 kg

DRUGS (13)
  1. YASMIN [Suspect]
     Indication: ACNE
     Dosage: UNK
     Dates: start: 2004
  2. YAZ [Suspect]
     Indication: ACNE
     Dosage: UNK
     Dates: start: 2004
  3. TOPROL XL [Concomitant]
     Indication: HEART RATE ABNORMAL
     Dosage: 25 MG, DAILY
  4. TYLENOL [Concomitant]
     Indication: PAIN
     Dosage: 10 Q 4-6 HOURS PRN
  5. TYLENOL [Concomitant]
     Indication: PYREXIA
  6. ALBUTEROL [Concomitant]
     Dosage: UNK UNK, Q4HR
  7. ATROVENT [Concomitant]
     Dosage: UNK UNK, Q4HR
  8. PREDNISONE [Concomitant]
     Dosage: 10 MG, TID
  9. PREDNISONE [Concomitant]
     Dosage: 10 MG, BID
  10. PREDNISONE [Concomitant]
     Dosage: 10 MG, DAILY
  11. PHENERGAN [Concomitant]
     Dosage: 12.5 MG, TID PRN
  12. LOVENOX [Concomitant]
  13. SOLU MEDROL [Concomitant]
     Dosage: 60 MG, EVERY 12 HOURS

REACTIONS (5)
  - Cerebrovascular accident [None]
  - Gallbladder disorder [None]
  - Injury [None]
  - Pain [None]
  - Pain [None]
